FAERS Safety Report 4503166-8 (Version None)
Quarter: 2004Q4

REPORT INFORMATION
  Report Type: 
  Country: None (occurrence: None)
  Receive Date: 20041117
  Receipt Date: 20041110
  Transmission Date: 20050328
  Serious: Yes (Other)
  Sender: FDA-Public Use
  Company Number: JP-MERCK-0411USA02460

PATIENT
  Age: 50 Year
  Sex: Female

DRUGS (4)
  1. DECADRON [Suspect]
     Indication: PROPHYLAXIS
     Route: 048
     Dates: start: 20041105, end: 20041105
  2. ZANTAC [Suspect]
     Indication: PROPHYLAXIS
     Route: 051
     Dates: start: 20041105, end: 20041105
  3. KYTRIL [Suspect]
     Indication: PROPHYLAXIS
     Route: 051
     Dates: start: 20041105, end: 20041105
  4. LACTEC [Concomitant]
     Indication: PROPHYLAXIS
     Route: 041

REACTIONS (1)
  - ANAPHYLACTIC SHOCK [None]
